FAERS Safety Report 17691332 (Version 3)
Quarter: 2020Q3

REPORT INFORMATION
  Report Type: Spontaneous
  Country: US (occurrence: US)
  Receive Date: 20200422
  Receipt Date: 20200827
  Transmission Date: 20201102
  Serious: No
  Sender: FDA-Public Use
  Company Number: US-CELGENEUS-USA-20200308009

PATIENT
  Sex: Female
  Weight: 58.11 kg

DRUGS (3)
  1. REVLIMID [Suspect]
     Active Substance: LENALIDOMIDE
     Indication: PLASMA CELL MYELOMA
     Dosage: 25 MILLIGRAM
     Route: 048
     Dates: start: 20200320
  2. REVLIMID [Suspect]
     Active Substance: LENALIDOMIDE
     Dosage: 15 MILLIGRAM
     Route: 048
     Dates: start: 202005
  3. DEXAMETHASONE. [Concomitant]
     Active Substance: DEXAMETHASONE
     Indication: PRODUCT USED FOR UNKNOWN INDICATION
     Route: 065

REACTIONS (15)
  - Insomnia [Not Recovered/Not Resolved]
  - Fatigue [Not Recovered/Not Resolved]
  - Visual brightness [Not Recovered/Not Resolved]
  - Feeling cold [Unknown]
  - Contusion [Unknown]
  - Arthralgia [Unknown]
  - Hypoaesthesia [Not Recovered/Not Resolved]
  - Back pain [Unknown]
  - Anaemia [Not Recovered/Not Resolved]
  - Diarrhoea [Not Recovered/Not Resolved]
  - Pruritus [Not Recovered/Not Resolved]
  - Asthenia [Not Recovered/Not Resolved]
  - Balance disorder [Not Recovered/Not Resolved]
  - Dysarthria [Recovered/Resolved]
  - Abdominal discomfort [Not Recovered/Not Resolved]

NARRATIVE: CASE EVENT DATE: 2020
